FAERS Safety Report 9680985 (Version 1)
Quarter: 2013Q4

REPORT INFORMATION
  Report Type: Spontaneous
  Country: IT (occurrence: IT)
  Receive Date: 20131111
  Receipt Date: 20131111
  Transmission Date: 20140711
  Serious: Yes (Death, Hospitalization, Other)
  Sender: FDA-Public Use
  Company Number: IT-BAYER-2013-133488

PATIENT
  Age: 47 Year
  Sex: Female

DRUGS (5)
  1. SORAFENIB (RAF KINASE INHIBITOR) [Suspect]
     Indication: ACUTE MYELOID LEUKAEMIA
     Dosage: 400 MG, BID
     Route: 048
  2. SORAFENIB (RAF KINASE INHIBITOR) [Suspect]
     Indication: ACUTE MYELOID LEUKAEMIA
     Route: 048
  3. SORAFENIB (RAF KINASE INHIBITOR) [Suspect]
     Indication: ACUTE MYELOID LEUKAEMIA
     Dosage: 600 MG, QD
     Route: 048
  4. CYTARABINE [Concomitant]
     Indication: ACUTE MYELOID LEUKAEMIA
  5. CLOFARABINE [Concomitant]
     Indication: ACUTE MYELOID LEUKAEMIA

REACTIONS (14)
  - Leukopenia [Recovered/Resolved]
  - Neutropenia [Recovered/Resolved]
  - Pyrexia [None]
  - Transaminases increased [None]
  - Electrocardiogram QT prolonged [None]
  - Thrombocytopenia [Recovered/Resolved]
  - Palmar-plantar erythrodysaesthesia syndrome [None]
  - Diarrhoea [None]
  - Blister [Recovered/Resolved]
  - Local swelling [None]
  - Acute pulmonary oedema [Fatal]
  - Aspergillus infection [None]
  - Transplant rejection [None]
  - Off label use [None]
